FAERS Safety Report 20590305 (Version 1)
Quarter: 2022Q1

REPORT INFORMATION
  Report Type: Spontaneous
  Country: US (occurrence: None)
  Receive Date: 20220313
  Receipt Date: 20220313
  Transmission Date: 20220423
  Serious: No
  Sender: FDA-Public Use
  Company Number: None

PATIENT
  Age: 51 Year
  Sex: Female
  Weight: 115.65 kg

DRUGS (1)
  1. PRAVASTATIN [Suspect]
     Active Substance: PRAVASTATIN
     Indication: Blood cholesterol increased

REACTIONS (3)
  - Chest pain [None]
  - Back pain [None]
  - Breast pain [None]

NARRATIVE: CASE EVENT DATE: 20220313
